FAERS Safety Report 4661615-9 (Version None)
Quarter: 2005Q2

REPORT INFORMATION
  Report Type: 
  Country: None (occurrence: None)
  Receive Date: 20050502
  Receipt Date: 20050214
  Transmission Date: 20051028
  Serious: No
  Sender: FDA-Public Use
  Company Number: 200510356US

PATIENT
  Age: 92 Year
  Sex: Female

DRUGS (9)
  1. KETEK [Suspect]
     Indication: BRONCHITIS
     Dosage: 400 MG QD PO
     Route: 048
     Dates: start: 20050106, end: 20050107
  2. GABAPENTIN [Concomitant]
  3. FUROSEMIDE [Concomitant]
  4. DILTIAZEM [Concomitant]
  5. DIGOXIN [Concomitant]
  6. AZMACORT [Concomitant]
  7. ALBUTEROL [Concomitant]
  8. IPRATROPIUM BROMIDE (ATROVENT INHALER) [Concomitant]
  9. LIPITOR [Concomitant]

REACTIONS (2)
  - ASTHENIA [None]
  - TREMOR [None]
